FAERS Safety Report 6848599-X (Version None)
Quarter: 2010Q3

REPORT INFORMATION
  Report Type: 
  Country: None (occurrence: None)
  Receive Date: 20100716
  Receipt Date: 20100714
  Transmission Date: 20110219
  Serious: Yes (Other)
  Sender: FDA-Public Use
  Company Number: US-BRISTOL-MYERS SQUIBB COMPANY-15193048

PATIENT
  Age: 40 Year
  Sex: Male

DRUGS (1)
  1. BARACLUDE [Suspect]
     Dates: end: 20100701

REACTIONS (1)
  - LACTIC ACIDOSIS [None]
